FAERS Safety Report 22064333 (Version 1)
Quarter: 2023Q1

REPORT INFORMATION
  Report Type: Spontaneous
  Country: US (occurrence: None)
  Receive Date: 20230303
  Receipt Date: 20230303
  Transmission Date: 20230418
  Serious: No
  Sender: FDA-Public Use
  Company Number: None

PATIENT
  Sex: Female

DRUGS (4)
  1. LENVIMA [Suspect]
     Active Substance: LENVATINIB
     Indication: Uterine cancer
     Dosage: FREQUENCY : DAILY;?
     Route: 048
     Dates: start: 20220216
  2. OXYCODONE [Concomitant]
     Active Substance: OXYCODONE
  3. LISINOPRIL [Concomitant]
     Active Substance: LISINOPRIL
  4. DOCUSATE [Concomitant]
     Active Substance: DOCUSATE

REACTIONS (5)
  - Nausea [None]
  - Headache [None]
  - Dizziness [None]
  - Arthralgia [None]
  - Arthralgia [None]
